FAERS Safety Report 7746380-0 (Version None)
Quarter: 2011Q3

REPORT INFORMATION
  Report Type: 
  Country: None (occurrence: None)
  Receive Date: 20110913
  Receipt Date: 20110913
  Transmission Date: 20111222
  Serious: Yes (Other)
  Sender: FDA-Public Use
  Company Number: None

PATIENT
  Age: 59 Year
  Sex: Female
  Weight: 1090.4 kg

DRUGS (8)
  1. TAXOL [Concomitant]
     Route: 042
  2. ZOFRAN [Concomitant]
     Route: 048
  3. CARBOPLATIN [Suspect]
     Indication: NON-SMALL CELL LUNG CANCER
     Dosage: 1193 MG
     Route: 042
     Dates: start: 20110426, end: 20110426
  4. BENADRYL [Concomitant]
     Route: 042
  5. EMEND [Concomitant]
     Route: 048
  6. ZANTAC [Concomitant]
     Route: 048
  7. COMPAZINE [Concomitant]
     Route: 048
  8. DECADRON [Concomitant]
     Route: 042

REACTIONS (3)
  - INFUSION SITE PAIN [None]
  - INFUSION SITE ERYTHEMA [None]
  - INFUSION SITE INDURATION [None]
